FAERS Safety Report 8760701 (Version 1)
Quarter: 2012Q4

REPORT INFORMATION
  Report Type: 
  Country: AU (occurrence: AU)
  Receive Date: 20120830
  Receipt Date: 20120830
  Transmission Date: 20130627
  Serious: Yes (Other)
  Sender: FDA-Public Use
  Company Number: AU-BRISTOL-MYERS SQUIBB COMPANY-16880619

PATIENT
  Age: 58 Year
  Sex: Female
  Weight: 73 kg

DRUGS (8)
  1. ORENCIA [Suspect]
     Indication: RHEUMATOID ARTHRITIS
     Dosage: last infusion:25Jul2012.
     Route: 042
     Dates: start: 20110509
  2. METHOTREXATE [Concomitant]
  3. PREDNISONE [Concomitant]
  4. MELOXICAM [Concomitant]
  5. SOMAC [Concomitant]
  6. PANADOL [Concomitant]
  7. FOLIC ACID [Concomitant]
  8. CITALOPRAM [Concomitant]

REACTIONS (1)
  - Hiatus hernia [Unknown]
